FAERS Safety Report 8537671-4 (Version None)
Quarter: 2012Q3

REPORT INFORMATION
  Report Type: 
  Country: None (occurrence: None)
  Receive Date: 20120725
  Receipt Date: 20120720
  Transmission Date: 20120928
  Serious: Yes (Other)
  Sender: FDA-Public Use
  Company Number: PHHY2012JP063699

PATIENT
  Sex: Female

DRUGS (2)
  1. NEORAL [Suspect]
     Route: 048
  2. LUNABELL [Concomitant]

REACTIONS (1)
  - GENITAL HAEMORRHAGE [None]
